FAERS Safety Report 18967911 (Version 1)
Quarter: 2021Q1

REPORT INFORMATION
  Report Type: Spontaneous
  Country: US (occurrence: US)
  Receive Date: 20210303
  Receipt Date: 20210303
  Transmission Date: 20210420
  Serious: Yes (Death)
  Sender: FDA-Public Use
  Company Number: None

PATIENT
  Age: 67 Year
  Sex: Female
  Weight: 81.65 kg

DRUGS (2)
  1. IVERMECTIN 3MG [Suspect]
     Active Substance: IVERMECTIN
     Indication: COVID-19
     Dosage: ?          OTHER FREQUENCY:Q48H X2 DOSES;?
     Route: 048
     Dates: start: 20200522, end: 20200524
  2. ACTEMRA [Suspect]
     Active Substance: TOCILIZUMAB
     Indication: COVID-19
     Dosage: ?          OTHER FREQUENCY:X1;?
     Route: 042
     Dates: start: 20200604, end: 20200604

REACTIONS (1)
  - Death [None]

NARRATIVE: CASE EVENT DATE: 20200622
